FAERS Safety Report 5492791-6 (Version None)
Quarter: 2007Q4

REPORT INFORMATION
  Report Type: 
  Country: None (occurrence: None)
  Receive Date: 20071023
  Receipt Date: 20071012
  Transmission Date: 20080405
  Serious: Yes (Hospitalization)
  Sender: FDA-Public Use
  Company Number: US-JNJFOC-20070600996

PATIENT
  Sex: Female
  Weight: 54.43 kg

DRUGS (15)
  1. DURAGESIC-100 [Suspect]
     Indication: PAIN
     Route: 062
  2. OXYCODONE HCL [Concomitant]
     Indication: PAIN
     Dosage: AS NEEDED
     Route: 048
  3. DYAZIDE [Concomitant]
     Indication: SWELLING
     Route: 048
  4. FLEXERIL [Concomitant]
     Indication: MUSCLE SPASMS
     Dosage: AS NEEDED
     Route: 048
  5. COLACE [Concomitant]
     Indication: CONSTIPATION
     Dosage: ONE OR TWO PER DAY AS NEEDED
     Route: 048
  6. PREVACID [Concomitant]
     Indication: GASTROINTESTINAL DISORDER
     Route: 048
  7. BACLOFEN [Concomitant]
     Indication: MUSCLE SPASMS
     Route: 048
  8. AMBIEN CR [Concomitant]
     Indication: SLEEP DISORDER
     Route: 048
  9. TRAZODONE HCL [Concomitant]
     Indication: SLEEP DISORDER
     Route: 048
  10. AMITRIPTYLINE HCL [Concomitant]
     Indication: SLEEP DISORDER
     Route: 048
  11. PREMARIN [Concomitant]
     Indication: ATROPHIC VULVOVAGINITIS
     Route: 015
  12. LIDOCAINE [Concomitant]
     Indication: ATROPHIC VULVOVAGINITIS
     Route: 061
  13. PREVIDENT [Concomitant]
     Indication: DRY MOUTH
     Route: 048
  14. CARAFATE [Concomitant]
     Indication: GASTROINTESTINAL DISORDER
     Dosage: AS NEEDED
     Route: 048
  15. CELEBREX [Concomitant]
     Indication: PAIN
     Route: 048

REACTIONS (4)
  - BLOOD CHOLESTEROL INCREASED [None]
  - EATING DISORDER [None]
  - HYPERSENSITIVITY [None]
  - WRONG TECHNIQUE IN DRUG USAGE PROCESS [None]
